FAERS Safety Report 24722373 (Version 2)
Quarter: 2025Q1

REPORT INFORMATION
  Report Type: Spontaneous
  Country: US (occurrence: US)
  Receive Date: 20241211
  Receipt Date: 20250115
  Transmission Date: 20250408
  Serious: No
  Sender: PFIZER
  Company Number: US-PFIZER INC-PV202400159357

PATIENT
  Age: 69 Year
  Sex: Female
  Weight: 88.5 kg

DRUGS (7)
  1. SOMATROPIN [Suspect]
     Active Substance: SOMATROPIN
     Indication: Hypopituitarism
     Dosage: 0.2 MG, 1X/DAY [INTO THE SKIN NIGHTLY]
     Dates: start: 20240110
  2. SOMATROPIN [Suspect]
     Active Substance: SOMATROPIN
     Indication: Growth hormone deficiency
  3. SOMATROPIN [Suspect]
     Active Substance: SOMATROPIN
     Dosage: 0.2 MG AS TOLERATED, AT 2 TIMES A WEEK
  4. SOMATROPIN [Suspect]
     Active Substance: SOMATROPIN
     Dosage: 0.1 MG FOR 2 NIGHTS ONCE A WEEK
  5. CORTEF [Concomitant]
     Active Substance: HYDROCORTISONE
     Dosage: 10 MG IN AM, 10 MG AT NOON AND 5-10 MG AT 2 PM. MAY DOUBLE DOSAGE FOR STRESS DOSING
     Dates: start: 20240409
  6. PROTONIX [Concomitant]
     Active Substance: PANTOPRAZOLE SODIUM
     Dosage: 40 MG, 1X/DAY EVERY MORNING BEFORE BREAKFAST
     Route: 048
     Dates: start: 20211018
  7. INDERAL [Concomitant]
     Active Substance: PROPRANOLOL HYDROCHLORIDE

REACTIONS (2)
  - Headache [Unknown]
  - Therapeutic response unexpected [Unknown]
